FAERS Safety Report 7482464-2 (Version None)
Quarter: 2011Q2

REPORT INFORMATION
  Report Type: 
  Country: None (occurrence: None)
  Receive Date: 20110516
  Receipt Date: 20110504
  Transmission Date: 20111010
  Serious: Yes (Hospitalization)
  Sender: FDA-Public Use
  Company Number: FR-UCBSA-032241

PATIENT
  Age: 69 Year
  Sex: Male

DRUGS (1)
  1. CIMZIA [Suspect]
     Route: 058
     Dates: start: 20101125

REACTIONS (1)
  - SEPSIS [None]
